FAERS Safety Report 7655591-4 (Version None)
Quarter: 2011Q3

REPORT INFORMATION
  Report Type: 
  Country: None (occurrence: None)
  Receive Date: 20110804
  Receipt Date: 20110729
  Transmission Date: 20111222
  Serious: Yes (Hospitalization)
  Sender: FDA-Public Use
  Company Number: US-BRISTOL-MYERS SQUIBB COMPANY-15856321

PATIENT
  Age: 72 Year
  Sex: Male
  Weight: 81 kg

DRUGS (8)
  1. COREG [Concomitant]
  2. PLAVIX [Concomitant]
  3. IPILIMUMAB [Suspect]
     Indication: MALIGNANT MELANOMA
     Dosage: LAST ADMINISTRATION: 15-JUN-2011 DUE TO PREVIOUS SAE CYCLE 2 WAS SKIPPED 10MG/KG IV OVER 90 MIN
     Route: 042
     Dates: start: 20110427
  4. LISINOPRIL [Concomitant]
     Indication: HYPERTENSION
  5. ASPIRIN [Concomitant]
  6. ROCEPHIN [Suspect]
  7. LANTUS [Concomitant]
  8. HYDROCHLOROTHIAZIDE [Concomitant]

REACTIONS (1)
  - NEUTROPHIL COUNT DECREASED [None]
